FAERS Safety Report 6383511-1 (Version None)
Quarter: 2009Q4

REPORT INFORMATION
  Report Type: 
  Country: None (occurrence: None)
  Receive Date: 20091001
  Receipt Date: 20090928
  Transmission Date: 20100525
  Serious: Yes (Other)
  Sender: FDA-Public Use
  Company Number: US-ROCHE-654220

PATIENT
  Age: 83 Year
  Sex: Female

DRUGS (14)
  1. BONIVA [Suspect]
     Indication: OSTEOPOROSIS
     Route: 048
     Dates: start: 20070101, end: 20070101
  2. BONIVA [Suspect]
     Route: 048
     Dates: start: 20090501
  3. BILBERRY [Concomitant]
  4. CENTRUM SILVER [Concomitant]
  5. LUTEIN [Concomitant]
     Dosage: DRUG: LUETIN
  6. ASPIRIN [Concomitant]
  7. DETROL LA [Concomitant]
  8. ISOSORBID [Concomitant]
  9. LOPRESSOR [Concomitant]
  10. LASIX [Concomitant]
  11. LIPITOR [Concomitant]
  12. ARMOUR THYROID [Concomitant]
     Dosage: DRUG: ARMOUR THYROID MED
  13. CALCIUM/VITAMIN D [Concomitant]
     Dosage: DRUG: CALCIUM/VIT D
  14. MULTIVITAMIN [Concomitant]
     Dosage: DRUG: OCCUVITE

REACTIONS (2)
  - COMPRESSION FRACTURE [None]
  - LOOSE TOOTH [None]
